FAERS Safety Report 7962172-1 (Version None)
Quarter: 2011Q4

REPORT INFORMATION
  Report Type: 
  Country: None (occurrence: None)
  Receive Date: 20111206
  Receipt Date: 20111121
  Transmission Date: 20120403
  Serious: Yes (Other)
  Sender: FDA-Public Use
  Company Number: USA/USA/11/0022135

PATIENT
  Age: 61 Year
  Sex: Female

DRUGS (2)
  1. VENLAFAXINE HCL [Suspect]
     Indication: MAJOR DEPRESSION
     Dosage: 37.5 MG, 1 D, 75 MG, 1 D
  2. TACROLIMUS [Suspect]
     Indication: IMMUNOSUPPRESSION

REACTIONS (7)
  - DIARRHOEA [None]
  - ATAXIA [None]
  - DRUG INTERACTION [None]
  - DEPRESSION [None]
  - SEROTONIN SYNDROME [None]
  - ENCEPHALOPATHY [None]
  - CONDITION AGGRAVATED [None]
